FAERS Safety Report 4814064-4 (Version None)
Quarter: 2005Q4

REPORT INFORMATION
  Report Type: 
  Country: None (occurrence: None)
  Receive Date: 20051028
  Receipt Date: 20050812
  Transmission Date: 20060501
  Serious: No
  Sender: FDA-Public Use
  Company Number: US-GLAXOSMITHKLINE-A0570063A

PATIENT
  Age: 59 Year
  Sex: Male
  Weight: 85.5 kg

DRUGS (4)
  1. SEREVENT [Suspect]
     Indication: ASTHMA
     Dosage: 50MCG UNKNOWN
     Route: 055
     Dates: start: 20030901, end: 20030901
  2. FLOVENT [Concomitant]
     Indication: ASTHMA
     Dosage: 2PUFF TWICE PER DAY
     Route: 055
  3. TILADE [Concomitant]
     Indication: ASTHMA
     Dosage: 2PUFF TWICE PER DAY
     Route: 055
  4. ALLEGRA [Concomitant]
     Indication: ASTHMA
     Route: 048

REACTIONS (4)
  - BRONCHOSPASM [None]
  - DRUG INEFFECTIVE [None]
  - FEELING ABNORMAL [None]
  - RETCHING [None]
